FAERS Safety Report 10872864 (Version 1)
Quarter: 2015Q1

REPORT INFORMATION
  Report Type: Spontaneous
  Country: US (occurrence: None)
  Receive Date: 20150223
  Receipt Date: 20150223
  Transmission Date: 20150721
  Serious: Yes (Death, Hospitalization)
  Sender: FDA-Public Use
  Company Number: None

PATIENT
  Age: 51 Year
  Sex: Female
  Weight: 68 kg

DRUGS (6)
  1. ASCORBIC ACID (VITAMIN C) [Concomitant]
     Active Substance: ASCORBIC ACID
  2. DIAZEPAM (VALIUM) [Concomitant]
  3. DEPAKOTE ER [Concomitant]
     Active Substance: DIVALPROEX SODIUM
  4. MULTIPLE VITAMINS-MINERALS (WOMENS MULTI VITAMIN + MINERAL) [Concomitant]
  5. CHOLECALCIFEROL (VITAMIN D3) [Concomitant]
  6. WARFARIN 5 MG [Suspect]
     Active Substance: WARFARIN
     Indication: TRANSIENT ISCHAEMIC ATTACK
     Dosage: 1TABLET QD ORAL
     Route: 048

REACTIONS (5)
  - Head injury [None]
  - International normalised ratio increased [None]
  - Endotracheal intubation complication [None]
  - Subdural haematoma [None]
  - Fall [None]

NARRATIVE: CASE EVENT DATE: 20140607
